FAERS Safety Report 12368973 (Version 1)
Quarter: 2016Q2

REPORT INFORMATION
  Report Type: Spontaneous
  Country: US (occurrence: US)
  Receive Date: 20160513
  Receipt Date: 20160513
  Transmission Date: 20160815
  Serious: Yes (Other)
  Sender: FDA-Public Use
  Company Number: US-SA-2016SA089800

PATIENT
  Age: 53 Year
  Sex: Male

DRUGS (3)
  1. SOLOSTAR [Concomitant]
     Active Substance: DEVICE
  2. NOVOLOG [Concomitant]
     Active Substance: INSULIN ASPART
  3. LANTUS SOLOSTAR [Suspect]
     Active Substance: INSULIN GLARGINE
     Indication: TYPE 2 DIABETES MELLITUS
     Dosage: DOSE:56 UNIT(S)
     Route: 065

REACTIONS (9)
  - Pulmonary fibrosis [Unknown]
  - Hepatic cirrhosis [Unknown]
  - Hypertension [Unknown]
  - Visual impairment [Unknown]
  - Pulmonary hypertension [Unknown]
  - Renal disorder [Unknown]
  - Oesophageal disorder [Unknown]
  - Memory impairment [Unknown]
  - Condition aggravated [Unknown]
